FAERS Safety Report 25746281 (Version 1)
Quarter: 2025Q3

REPORT INFORMATION
  Report Type: Report from Study
  Country: EU (occurrence: EU)
  Receive Date: 20250901
  Receipt Date: 20250901
  Transmission Date: 20251021
  Serious: Yes (Other)
  Sender: ORGANON
  Company Number: EU-GRUNENTHAL-2024-124634

PATIENT
  Age: 50 Year
  Sex: Female

DRUGS (19)
  1. MIRTAZAPINE [Suspect]
     Active Substance: MIRTAZAPINE
     Indication: Affective disorder
     Dosage: 15 MILLIGRAM, 1/DAY/ONGOING, FOR FOUR YEARS
     Dates: start: 2016
  2. MIRTAZAPINE [Suspect]
     Active Substance: MIRTAZAPINE
     Indication: Sleep disorder
  3. MOTILIUM [Suspect]
     Active Substance: DOMPERIDONE
     Indication: Product used for unknown indication
  4. MOTILIUM [Suspect]
     Active Substance: DOMPERIDONE
     Indication: Migraine
  5. ERENUMAB [Interacting]
     Active Substance: ERENUMAB
     Indication: Migraine
     Dosage: EVERY 4 WEEKS
     Route: 058
     Dates: start: 2023
  6. AMITRIPTYLINE [Suspect]
     Active Substance: AMITRIPTYLINE
     Indication: Migraine prophylaxis
     Dosage: 75 MILLIGRAM, 1/DAY
  7. AMITRIPTYLINE [Suspect]
     Active Substance: AMITRIPTYLINE
     Dates: start: 2022
  8. ZOMIG [Interacting]
     Active Substance: ZOLMITRIPTAN
     Indication: Migraine
  9. PROPRANOLOL [Suspect]
     Active Substance: PROPRANOLOL HYDROCHLORIDE
     Indication: Migraine prophylaxis
     Route: 048
     Dates: start: 2023
  10. TOPIRAMATE [Suspect]
     Active Substance: TOPIRAMATE
     Indication: Migraine prophylaxis
     Dosage: 25 MILLIGRAM, 2/DAY
     Route: 048
  11. TOPIRAMATE [Suspect]
     Active Substance: TOPIRAMATE
     Indication: Migraine prophylaxis
  12. FREMANEZUMAB [Suspect]
     Active Substance: FREMANEZUMAB
     Indication: Migraine
     Dates: start: 202112
  13. IXPRIM [Suspect]
     Active Substance: ACETAMINOPHEN\TRAMADOL HYDROCHLORIDE
     Indication: Migraine
  14. RIMEGEPANT [Interacting]
     Active Substance: RIMEGEPANT
     Indication: Migraine
     Dosage: 75 MG, DAILY UP TO 10 DAYS A MONTH
     Route: 048
     Dates: start: 202308
  15. DIHYDROERGOTAMINE [Suspect]
     Active Substance: DIHYDROERGOTAMINE
     Indication: Migraine
     Route: 042
     Dates: start: 2022
  16. CANDESARTAN [Suspect]
     Active Substance: CANDESARTAN
     Indication: Migraine prophylaxis
     Dosage: 16 MILLIGRAM, 1/DAY
  17. CANDESARTAN [Suspect]
     Active Substance: CANDESARTAN
     Dates: start: 2020
  18. BOTOX [Suspect]
     Active Substance: ONABOTULINUMTOXINA
     Indication: Migraine
     Dates: start: 2023
  19. VENLAFAXINE [Suspect]
     Active Substance: VENLAFAXINE HYDROCHLORIDE
     Indication: Migraine prophylaxis
     Route: 048
     Dates: start: 202012

REACTIONS (6)
  - Unmasking of previously unidentified disease [Unknown]
  - Coronary artery stenosis [Unknown]
  - Drug interaction [Unknown]
  - Arteriospasm coronary [Unknown]
  - Therapeutic product effect incomplete [Unknown]
  - Off label use [Unknown]

NARRATIVE: CASE EVENT DATE: 20240101
